FAERS Safety Report 7577638-6 (Version None)
Quarter: 2011Q2

REPORT INFORMATION
  Report Type: 
  Country: None (occurrence: None)
  Receive Date: 20110628
  Receipt Date: 20110624
  Transmission Date: 20111010
  Serious: Yes (Other)
  Sender: FDA-Public Use
  Company Number: JP-PFIZER INC-2011141728

PATIENT
  Age: 50 Year
  Sex: Male

DRUGS (5)
  1. LYRICA [Suspect]
     Indication: NEURALGIA
     Dosage: 150 MG DAILY
     Route: 048
     Dates: start: 20101001, end: 20110215
  2. IMIDAPRIL HYDROCHLORIDE [Concomitant]
     Dosage: 5 MG DAILY
     Route: 048
  3. NORVASC [Concomitant]
     Dosage: 5 MG DAILY
     Route: 048
  4. VALSARTAN [Concomitant]
     Dosage: 160 MG DAILY
     Route: 048
  5. SALOBEL [Concomitant]
     Dosage: 200 MG DAILY
     Route: 048

REACTIONS (2)
  - HYPERKALAEMIA [None]
  - RENAL IMPAIRMENT [None]
